FAERS Safety Report 26125429 (Version 1)
Quarter: 2025Q4

REPORT INFORMATION
  Report Type: Spontaneous
  Country: CN (occurrence: CN)
  Receive Date: 20251205
  Receipt Date: 20251205
  Transmission Date: 20260117
  Serious: Yes (Other)
  Sender: BAYER HEALTHCARE PHARMACEUTICALS INC.
  Company Number: CN-BAYER-2025A160043

PATIENT
  Age: 68 Year
  Sex: Male
  Weight: 70 kg

DRUGS (3)
  1. ULTRAVIST [Suspect]
     Active Substance: IOPROMIDE
     Indication: Angiocardiogram
     Dosage: 10 ML, ONCE
     Route: 042
     Dates: start: 20240314, end: 20240314
  2. ULTRAVIST [Suspect]
     Active Substance: IOPROMIDE
     Indication: Cardiac failure chronic
  3. OXYGEN [Concomitant]
     Active Substance: OXYGEN
     Dosage: UNK, INHALATION BY NASAL CANNULA AT SPEED OF 4L/MIN
     Route: 055
     Dates: start: 20240314

REACTIONS (10)
  - Contrast media allergy [Recovering/Resolving]
  - Blood pressure immeasurable [Recovered/Resolved]
  - Heart rate increased [None]
  - Oxygen saturation decreased [Recovered/Resolved]
  - Chills [Recovering/Resolving]
  - Cyanosis [Recovering/Resolving]
  - Breath sounds abnormal [None]
  - Rales [None]
  - Abdominal distension [None]
  - Blood glucose decreased [Recovered/Resolved]

NARRATIVE: CASE EVENT DATE: 20240314
